FAERS Safety Report 8040024-9 (Version None)
Quarter: 2012Q1

REPORT INFORMATION
  Report Type: 
  Country: None (occurrence: None)
  Receive Date: 20120111
  Receipt Date: 20111222
  Transmission Date: 20120608
  Serious: No
  Sender: FDA-Public Use
  Company Number: US-AMGEN-USASP2011062388

PATIENT
  Age: 56 Year
  Sex: Female

DRUGS (1)
  1. ENBREL [Suspect]
     Indication: PSORIASIS
     Dosage: 50 MG, QWK
     Dates: start: 20111021

REACTIONS (7)
  - DRY SKIN [None]
  - DRUG EFFECT DECREASED [None]
  - SKIN HAEMORRHAGE [None]
  - SKIN FISSURES [None]
  - PSORIASIS [None]
  - INJECTION SITE ERYTHEMA [None]
  - SKIN EXFOLIATION [None]
